FAERS Safety Report 20016954 (Version 2)
Quarter: 2021Q4

REPORT INFORMATION
  Report Type: Report from Study
  Country: US (occurrence: US)
  Receive Date: 20211030
  Receipt Date: 20211231
  Transmission Date: 20220303
  Serious: Yes (Other)
  Sender: FDA-Public Use
  Company Number: US-NOVARTISPH-NVSC2021US246626

PATIENT
  Sex: Male

DRUGS (1)
  1. ENTRESTO [Suspect]
     Active Substance: SACUBITRIL\VALSARTAN
     Indication: Product used for unknown indication
     Dosage: HALF TAB (0.5 DF) OF THE 97/103MG IN THE MORNING AND A FULL TAB (1 DF) IN THE EVENING)
     Route: 048

REACTIONS (8)
  - Parkinson^s disease [Unknown]
  - Atrial fibrillation [Unknown]
  - Hypoacusis [Unknown]
  - Injury [Unknown]
  - Contusion [Unknown]
  - Fall [Unknown]
  - Hypotension [Unknown]
  - Wrong technique in product usage process [Unknown]
